FAERS Safety Report 9238491 (Version 1)
Quarter: 2013Q2

REPORT INFORMATION
  Report Type: Spontaneous
  Country: US (occurrence: None)
  Receive Date: 20130417
  Receipt Date: 20130417
  Transmission Date: 20140414
  Serious: Yes (Other)
  Sender: FDA-Public Use
  Company Number: None

PATIENT
  Age: 67 Year
  Sex: Female
  Weight: 107.96 kg

DRUGS (2)
  1. ACTOS [Suspect]
     Indication: DIABETES MELLITUS
     Route: 048
     Dates: start: 20091201, end: 20130413
  2. LEVEMIR [Suspect]
     Indication: DIABETES MELLITUS
     Route: 030
     Dates: start: 20100101, end: 20130413

REACTIONS (1)
  - Adenocarcinoma pancreas [None]
